FAERS Safety Report 20138491 (Version 3)
Quarter: 2023Q1

REPORT INFORMATION
  Report Type: Spontaneous
  Country: US (occurrence: US)
  Receive Date: 20211202
  Receipt Date: 20230309
  Transmission Date: 20230418
  Serious: Yes (Hospitalization)
  Sender: FDA-Public Use
  Company Number: US-HORIZON THERAPEUTICS-HZN-2021-007350

PATIENT

DRUGS (2)
  1. RAYOS [Suspect]
     Active Substance: PREDNISONE
     Indication: Rheumatoid arthritis
     Dosage: 5 MG (2 TABLETS), QD (TAKE TWO 5MG TABLETS BY MOUTH AT 10PM DAILLY)
     Route: 048
     Dates: start: 20201021
  2. RAYOS [Suspect]
     Active Substance: PREDNISONE
     Indication: Multifocal fibrosclerosis

REACTIONS (5)
  - Catheterisation cardiac [Unknown]
  - Malaise [Unknown]
  - Oedema peripheral [Unknown]
  - Foreign body in gastrointestinal tract [Unknown]
  - Product dose omission issue [Unknown]

NARRATIVE: CASE EVENT DATE: 20211114
